FAERS Safety Report 5060886-7 (Version None)
Quarter: 2006Q2

REPORT INFORMATION
  Report Type: 
  Country: None (occurrence: None)
  Receive Date: 20060630
  Receipt Date: 20050830
  Transmission Date: 20061013
  Serious: Yes (Hospitalization)
  Sender: FDA-Public Use
  Company Number: 416252

PATIENT
  Age: 58 Year
  Sex: Male
  Weight: 88 kg

DRUGS (14)
  1. CELLCEPT [Suspect]
     Indication: PROPHYLAXIS AGAINST TRANSPLANT REJECTION
     Dosage: 500 MG 2 PER DAY ORAL
     Route: 048
     Dates: start: 20050809, end: 20050830
  2. CYCLOSPORINE [Concomitant]
  3. ALLOPURINOL [Concomitant]
  4. IMURAN [Concomitant]
  5. PREDNISONE TAB [Concomitant]
  6. PROCARDIA XL [Concomitant]
  7. HYDRALAZINE HCL [Concomitant]
  8. COLCHICUM JTL LIQ [Concomitant]
  9. ISOSORBIDE DINITRATE [Concomitant]
  10. SIMVASTATIN [Concomitant]
  11. BENAZEPRIL HYDROCHLORIDE [Concomitant]
  12. FISH OIL (FISH OIL) [Concomitant]
  13. MAGNESIUM OXIDE (MAGNESIUM OXIDE) [Concomitant]
  14. CALCIUM/VITAMIN D (CALCIUM/VITAMIN D NOS) [Concomitant]

REACTIONS (12)
  - ALVEOLITIS [None]
  - COUGH [None]
  - DYSPNOEA [None]
  - HYPOXIA [None]
  - METABOLIC ACIDOSIS [None]
  - PNEUMONIA [None]
  - PNEUMONITIS [None]
  - PRODUCTIVE COUGH [None]
  - PULMONARY OEDEMA [None]
  - RENAL FAILURE [None]
  - RESPIRATORY FAILURE [None]
  - SEPSIS [None]
